FAERS Safety Report 9346688 (Version 1)
Quarter: 2013Q2

REPORT INFORMATION
  Report Type: Spontaneous
  Country: US (occurrence: US)
  Receive Date: 20130613
  Receipt Date: 20130613
  Transmission Date: 20140414
  Serious: No
  Sender: FDA-Public Use
  Company Number: US-BAYER-2013-072119

PATIENT
  Age: 39 Year
  Sex: Female

DRUGS (1)
  1. SAFYRAL [Suspect]
     Dosage: 3MG/0.03MG/0.451MG AND 0.45
     Route: 048
     Dates: start: 20130601

REACTIONS (2)
  - Blood pressure increased [Not Recovered/Not Resolved]
  - Anxiety [Not Recovered/Not Resolved]
